FAERS Safety Report 19228135 (Version 1)
Quarter: 2021Q2

REPORT INFORMATION
  Report Type: Spontaneous
  Country: US (occurrence: US)
  Receive Date: 20210506
  Receipt Date: 20210506
  Transmission Date: 20210717
  Serious: Yes (Death, Other)
  Sender: FDA-Public Use
  Company Number: US-ADAMAS PHARMA, LLC-2021ADA00956

PATIENT
  Age: 82 Year
  Sex: Female

DRUGS (2)
  1. UNSPECIFIED LEVODOPA?BASED THERAPY [Concomitant]
     Active Substance: LEVODOPA
  2. GOCOVRI [Suspect]
     Active Substance: AMANTADINE
     Indication: DYSKINESIA
     Dosage: 68.5 MG, 1X/DAY EVERY NIGHT
     Route: 048
     Dates: start: 20201119, end: 202104

REACTIONS (2)
  - Parkinson^s disease [Fatal]
  - Herpes zoster [Unknown]

NARRATIVE: CASE EVENT DATE: 20210422
